FAERS Safety Report 4885905-X (Version None)
Quarter: 2006Q1

REPORT INFORMATION
  Report Type: 
  Country: None (occurrence: None)
  Receive Date: 20060120
  Receipt Date: 20050902
  Transmission Date: 20060701
  Serious: Yes (Death, Hospitalization)
  Sender: FDA-Public Use
  Company Number: US-ROCHE-416449

PATIENT
  Age: 62 Year
  Sex: Male

DRUGS (5)
  1. PEG-INTERFERON ALFA 2A (RO 25-8310) [Suspect]
     Route: 058
     Dates: start: 20041105, end: 20041118
  2. PEG-INTERFERON ALFA 2A (RO 25-8310) [Suspect]
     Route: 058
     Dates: start: 20041119, end: 20041209
  3. PEG-INTERFERON ALFA 2A (RO 25-8310) [Suspect]
     Route: 058
     Dates: start: 20041210, end: 20050819
  4. RIBAVIRIN [Suspect]
     Route: 048
     Dates: start: 20041105, end: 20050824
  5. VITAMINS NOS [Concomitant]
     Dates: start: 20041230

REACTIONS (2)
  - LOSS OF CONSCIOUSNESS [None]
  - SUBDURAL HAEMATOMA [None]
